FAERS Safety Report 9354063 (Version 3)
Quarter: 2013Q4

REPORT INFORMATION
  Report Type: Spontaneous
  Country: DE (occurrence: DE)
  Receive Date: 20130618
  Receipt Date: 20131030
  Transmission Date: 20140711
  Serious: Yes (Hospitalization, Other)
  Sender: FDA-Public Use
  Company Number: DE-ALLERGAN-1305120US

PATIENT
  Age: 72 Year
  Sex: Male

DRUGS (6)
  1. ALPHAGAN 0,2 % M/V (2MG/ML) AUGENTROPFEN [Suspect]
     Indication: GLAUCOMA
     Dosage: 1 DROP IN EACH EYE TWICE DAILY
     Route: 047
     Dates: start: 201211, end: 2013
  2. ALPHAGAN 0,2 % M/V (2MG/ML) AUGENTROPFEN [Suspect]
     Indication: NORMAL TENSION GLAUCOMA
  3. TAFLOTAN [Concomitant]
     Indication: GLAUCOMA
     Dosage: DAILY IN THE EVENING
     Route: 047
     Dates: end: 201305
  4. TAFLOTAN [Concomitant]
     Dosage: DAILY IN THE EVENING
     Route: 047
     Dates: start: 20130602
  5. COSOPT-S [Concomitant]
     Indication: GLAUCOMA
     Dosage: TWICE DAILY
     Route: 047
     Dates: end: 201305
  6. COSOPT-S [Concomitant]
     Dosage: TWICE DAILY
     Route: 047
     Dates: start: 20130602

REACTIONS (8)
  - Vestibular disorder [Recovered/Resolved]
  - Dyspnoea [Recovered/Resolved]
  - Visual acuity reduced [Recovered/Resolved]
  - Faeces soft [Recovered/Resolved]
  - Nasal dryness [Not Recovered/Not Resolved]
  - Dry mouth [Recovered/Resolved]
  - Fatigue [Recovered/Resolved]
  - Heart rate decreased [Recovered/Resolved]
